FAERS Safety Report 24597384 (Version 2)
Quarter: 2025Q3

REPORT INFORMATION
  Report Type: Spontaneous
  Country: CH (occurrence: CH)
  Receive Date: 20241110
  Receipt Date: 20250809
  Transmission Date: 20251021
  Serious: Yes (Hospitalization, Other)
  Sender: ALEXION PHARMACEUTICALS
  Company Number: None

PATIENT
  Age: 72 Year
  Sex: Female
  Weight: 75.3 kg

DRUGS (17)
  1. DAPAGLIFLOZIN [Suspect]
     Active Substance: DAPAGLIFLOZIN
  2. ZOLEDRONIC ACID ANHYDROUS [Suspect]
     Active Substance: ZOLEDRONIC ACID ANHYDROUS
     Indication: Osteoporosis
  3. ASPIRIN [Suspect]
     Active Substance: ASPIRIN
  4. ESOMEPRAZOLE MAGNESIUM [Suspect]
     Active Substance: ESOMEPRAZOLE MAGNESIUM
  5. TORSEMIDE [Suspect]
     Active Substance: TORSEMIDE
  6. LISINOPRIL [Suspect]
     Active Substance: LISINOPRIL
  7. BISOPROLOL MEPHA [Concomitant]
  8. PRAVASTATIN [Concomitant]
     Active Substance: PRAVASTATIN
  9. FOLIC ACID [Concomitant]
     Active Substance: FOLIC ACID
  10. CHOLECALCIFEROL [Concomitant]
     Active Substance: CHOLECALCIFEROL
  11. BRICANYL [Concomitant]
     Active Substance: TERBUTALINE SULFATE
  12. DAFALGAN [Concomitant]
     Active Substance: ACETAMINOPHEN
  13. LORMETAZEPAM [Concomitant]
     Active Substance: LORMETAZEPAM
  14. MAGNESIUM ASPARTATE HYDROCHLORIDE [Concomitant]
     Active Substance: MAGNESIUM ASPARTATE HYDROCHLORIDE
     Indication: Muscle spasms
  15. NITROLINGUAL [Concomitant]
     Active Substance: NITROGLYCERIN
  16. PREDNISOLONE [Concomitant]
     Active Substance: PREDNISOLONE
  17. DIPROPHOS [Concomitant]
     Active Substance: BETAMETHASONE DIPROPIONATE\BETAMETHASONE SODIUM PHOSPHATE
     Route: 050

REACTIONS (1)
  - Nephritis [Recovered/Resolved with Sequelae]

NARRATIVE: CASE EVENT DATE: 20240303
